FAERS Safety Report 20535864 (Version 2)
Quarter: 2022Q1

REPORT INFORMATION
  Report Type: Report from Study
  Country: US (occurrence: US)
  Receive Date: 20220302
  Receipt Date: 20220331
  Transmission Date: 20220423
  Serious: Yes (Hospitalization)
  Sender: FDA-Public Use
  Company Number: US-JNJFOC-20211023677

PATIENT
  Age: 82 Year
  Sex: Male
  Weight: 91 kg

DRUGS (12)
  1. ERDAFITINIB [Suspect]
     Active Substance: ERDAFITINIB
     Indication: Bladder cancer
     Route: 048
     Dates: start: 20210722, end: 20211009
  2. LORAZEPAM [Concomitant]
     Active Substance: LORAZEPAM
     Indication: Anxiety
     Route: 065
     Dates: start: 2017
  3. LOTREL [Concomitant]
     Active Substance: AMLODIPINE BESYLATE\BENAZEPRIL HYDROCHLORIDE
     Indication: Acute coronary syndrome
     Route: 065
     Dates: start: 20200303
  4. TOPROL XL [Concomitant]
     Active Substance: METOPROLOL SUCCINATE
     Indication: Atrial fibrillation
     Route: 065
     Dates: start: 20210215
  5. LASIX [Concomitant]
     Active Substance: FUROSEMIDE
     Indication: Acute coronary syndrome
     Route: 065
     Dates: start: 20210414
  6. PROSCAR [Concomitant]
     Active Substance: FINASTERIDE
     Indication: Prostatic obstruction
     Route: 065
     Dates: start: 20171013
  7. VITAMIN B12 [Concomitant]
     Active Substance: CYANOCOBALAMIN
     Indication: Supplementation therapy
     Route: 065
     Dates: start: 2013
  8. LIPITOR [Concomitant]
     Active Substance: ATORVASTATIN CALCIUM
     Indication: Cardiovascular event prophylaxis
     Route: 065
     Dates: start: 20200624
  9. VITAMIN D3 [Concomitant]
     Active Substance: CHOLECALCIFEROL
     Indication: Supplementation therapy
     Route: 065
     Dates: start: 20160926
  10. LACTULOSE [Concomitant]
     Active Substance: LACTULOSE
     Indication: Prostatic obstruction
     Route: 065
     Dates: start: 20201221
  11. XANAX [Concomitant]
     Active Substance: ALPRAZOLAM
     Indication: Anxiety
     Route: 065
     Dates: start: 2017
  12. ONDANSETRON [Concomitant]
     Active Substance: ONDANSETRON
     Indication: Nausea
     Route: 065

REACTIONS (2)
  - Large intestine perforation [Not Recovered/Not Resolved]
  - Lower gastrointestinal haemorrhage [Recovered/Resolved]

NARRATIVE: CASE EVENT DATE: 20211010
